FAERS Safety Report 4764676-1 (Version None)
Quarter: 2005Q3

REPORT INFORMATION
  Report Type: 
  Country: None (occurrence: None)
  Receive Date: 20050909
  Receipt Date: 20050311
  Transmission Date: 20060218
  Serious: Yes (Life-Threatening, Hospitalization, Disabling)
  Sender: FDA-Public Use
  Company Number: US-MERCK-0503USA01798

PATIENT
  Age: 74 Year
  Sex: Male

DRUGS (5)
  1. VIOXX [Suspect]
     Indication: OSTEOARTHRITIS
     Route: 048
     Dates: start: 19991228, end: 20040901
  2. [THERAPY UNSPECIFIED] [Concomitant]
     Route: 065
  3. ZOCOR [Concomitant]
     Route: 065
  4. CLARITIN [Concomitant]
     Route: 065
  5. NASACORT [Concomitant]
     Route: 065

REACTIONS (23)
  - ASTHMA [None]
  - BARRETT'S OESOPHAGUS [None]
  - BRONCHITIS [None]
  - BURSITIS [None]
  - CANDIDIASIS [None]
  - CARPAL TUNNEL SYNDROME [None]
  - COUGH [None]
  - DERMATITIS [None]
  - ECZEMA [None]
  - EMBOLISM [None]
  - ERECTILE DYSFUNCTION [None]
  - FALL [None]
  - FATIGUE [None]
  - GLUCOSE TOLERANCE IMPAIRED [None]
  - HYPOGONADISM [None]
  - MUSCLE INJURY [None]
  - PERIARTHRITIS [None]
  - PRODUCTIVE COUGH [None]
  - PROTEINURIA [None]
  - ROTATOR CUFF SYNDROME [None]
  - SEBORRHOEIC DERMATITIS [None]
  - SINUS CONGESTION [None]
  - WRONG TECHNIQUE IN DRUG USAGE PROCESS [None]
